FAERS Safety Report 16412299 (Version 2)
Quarter: 2019Q3

REPORT INFORMATION
  Report Type: Spontaneous
  Country: US (occurrence: US)
  Receive Date: 20190610
  Receipt Date: 20190710
  Transmission Date: 20191004
  Serious: Yes (Life-Threatening, Other)
  Sender: FDA-Public Use
  Company Number: US-GILEAD-2019-0412500

PATIENT
  Age: 62 Year
  Sex: Male
  Weight: 88.2 kg

DRUGS (12)
  1. LEVAQUIN [Concomitant]
     Active Substance: LEVOFLOXACIN
  2. ALLOPURINOL. [Concomitant]
     Active Substance: ALLOPURINOL
  3. MS CONTIN [Concomitant]
     Active Substance: MORPHINE SULFATE
  4. FLUCONAZOLE. [Concomitant]
     Active Substance: FLUCONAZOLE
  5. ONDANSETRON [Concomitant]
     Active Substance: ONDANSETRON
  6. ACYCLOVIR [ACICLOVIR] [Concomitant]
     Active Substance: ACYCLOVIR
  7. YESCARTA [Suspect]
     Active Substance: AXICABTAGENE CILOLEUCEL
     Indication: DIFFUSE LARGE B-CELL LYMPHOMA
     Dosage: UNK UNK, ONCE
     Route: 042
     Dates: start: 20190528, end: 20190528
  8. LORATADINE. [Concomitant]
     Active Substance: LORATADINE
  9. VORICONAZOLE. [Suspect]
     Active Substance: VORICONAZOLE
     Indication: PRODUCT USED FOR UNKNOWN INDICATION
     Route: 042
  10. MICAFUNGIN. [Concomitant]
     Active Substance: MICAFUNGIN SODIUM
  11. KEPPRA [Concomitant]
     Active Substance: LEVETIRACETAM
  12. AMLODIPINE [Concomitant]
     Active Substance: AMLODIPINE BESYLATE

REACTIONS (14)
  - Urinary retention [Unknown]
  - Neutrophil count decreased [Not Recovered/Not Resolved]
  - Cortisol increased [Unknown]
  - Neurotoxicity [Recovered/Resolved]
  - Syncope [Recovered/Resolved]
  - Blood corticotrophin increased [Unknown]
  - Deep vein thrombosis [Unknown]
  - Urinary incontinence [Unknown]
  - Orthostatic hypotension [Recovered/Resolved]
  - Tachycardia [Unknown]
  - Platelet count decreased [Unknown]
  - Physical deconditioning [Not Recovered/Not Resolved]
  - Liver function test increased [Recovered/Resolved]
  - Cytokine release syndrome [Recovered/Resolved]

NARRATIVE: CASE EVENT DATE: 201905
